FAERS Safety Report 7414809-3 (Version None)
Quarter: 2011Q2

REPORT INFORMATION
  Report Type: 
  Country: None (occurrence: None)
  Receive Date: 20110414
  Receipt Date: 20101021
  Transmission Date: 20111010
  Serious: No
  Sender: FDA-Public Use
  Company Number: A0888059A

PATIENT
  Age: 62 Year
  Sex: Male

DRUGS (2)
  1. NO CONCURRENT MEDICATION [Concomitant]
  2. LUXIQ [Suspect]
     Route: 061

REACTIONS (1)
  - DRUG ADMINISTRATION ERROR [None]
